FAERS Safety Report 10513864 (Version 1)
Quarter: 2014Q4

REPORT INFORMATION
  Report Type: Spontaneous
  Country: US (occurrence: US)
  Receive Date: 20141013
  Receipt Date: 20141013
  Transmission Date: 20150528
  Serious: No
  Sender: FDA-Public Use
  Company Number: US-PFIZER INC-2014276407

PATIENT
  Age: 60 Year
  Sex: Female

DRUGS (1)
  1. SUTENT [Suspect]
     Active Substance: SUNITINIB MALATE
     Indication: PANCREATIC CARCINOMA
     Dosage: 37.5 MG (25 MG + 12.5 MG), UNK
     Dates: start: 20140802, end: 2014

REACTIONS (1)
  - Blood pressure abnormal [Unknown]

NARRATIVE: CASE EVENT DATE: 20141006
